FAERS Safety Report 6473022-7 (Version None)
Quarter: 2009Q4

REPORT INFORMATION
  Report Type: 
  Country: None (occurrence: None)
  Receive Date: 20091204
  Receipt Date: 20091125
  Transmission Date: 20100525
  Serious: Yes (Hospitalization)
  Sender: FDA-Public Use
  Company Number: US-BIOGENIDEC-2009BI024147

PATIENT
  Age: 59 Year
  Sex: Female

DRUGS (2)
  1. AVONEX [Suspect]
     Indication: MULTIPLE SCLEROSIS
     Route: 030
     Dates: start: 20040108
  2. COUMADIN [Concomitant]
     Dates: start: 20090701

REACTIONS (4)
  - CONTRAST MEDIA ALLERGY [None]
  - CONTRAST MEDIA REACTION [None]
  - DRUG LEVEL FLUCTUATING [None]
  - THROMBOSIS [None]
